FAERS Safety Report 4999685-0 (Version None)
Quarter: 2006Q2

REPORT INFORMATION
  Report Type: 
  Country: None (occurrence: None)
  Receive Date: 20060511
  Receipt Date: 20060427
  Transmission Date: 20061013
  Serious: Yes (Death, Other)
  Sender: FDA-Public Use
  Company Number: US-MERCK-0605USA00112

PATIENT
  Age: 50 Year
  Sex: Male
  Weight: 58 kg

DRUGS (3)
  1. VIOXX [Suspect]
     Indication: ARTHRALGIA
     Route: 048
  2. VIOXX [Suspect]
     Indication: REPETITIVE STRAIN INJURY
     Route: 048
  3. PREDNISONE [Concomitant]
     Route: 065

REACTIONS (7)
  - DEATH [None]
  - DRUG INEFFECTIVE [None]
  - HEPATIC NEOPLASM MALIGNANT [None]
  - METASTASES TO BONE [None]
  - PANCYTOPENIA [None]
  - PYREXIA [None]
  - SEPSIS [None]
